FAERS Safety Report 7645586-9 (Version None)
Quarter: 2011Q3

REPORT INFORMATION
  Report Type: 
  Country: None (occurrence: None)
  Receive Date: 20110729
  Receipt Date: 20110726
  Transmission Date: 20111222
  Serious: Yes (Other)
  Sender: FDA-Public Use
  Company Number: US-PFIZER INC-2011108589

PATIENT
  Sex: Male
  Weight: 96 kg

DRUGS (3)
  1. CHANTIX [Suspect]
     Indication: SMOKING CESSATION THERAPY
     Dosage: 0.5 MG, DAILY
     Route: 048
     Dates: start: 20110510, end: 20110501
  2. CHANTIX [Suspect]
     Dosage: 1 MG, 2X/DAY
     Route: 048
     Dates: start: 20110501, end: 20110501
  3. CHANTIX [Suspect]
     Dosage: UNK
     Route: 048
     Dates: start: 20110501, end: 20110518

REACTIONS (4)
  - URTICARIA [None]
  - DYSPNOEA [None]
  - DYSPHAGIA [None]
  - MALAISE [None]
